FAERS Safety Report 5160499-2 (Version None)
Quarter: 2006Q4

REPORT INFORMATION
  Report Type: 
  Country: None (occurrence: None)
  Receive Date: 20061129
  Receipt Date: 20061121
  Transmission Date: 20070319
  Serious: Yes (Hospitalization)
  Sender: FDA-Public Use
  Company Number: FR-BOEHRINGER INGELHEIM PHARMACEUTICALS, INC.-2006-BP-13830YA

PATIENT
  Age: 87 Year
  Sex: Male

DRUGS (8)
  1. OMIX L.P. [Suspect]
     Indication: BENIGN PROSTATIC HYPERPLASIA
     Route: 048
     Dates: end: 20060909
  2. BURINEX [Suspect]
     Indication: HYPERTENSION
     Route: 048
     Dates: end: 20060818
  3. BURINEX [Suspect]
     Route: 048
     Dates: start: 20060819
  4. FLECAINIDE ACETATE [Suspect]
     Indication: ARRHYTHMIA
     Route: 048
  5. PERMIXON [Suspect]
     Indication: BENIGN PROSTATIC HYPERPLASIA
     Route: 048
  6. FOZITEC [Suspect]
     Indication: HYPERTENSION
     Route: 048
     Dates: end: 20060819
  7. FOZITEC [Suspect]
     Route: 048
     Dates: start: 20060822, end: 20060905
  8. AGYRAX [Concomitant]

REACTIONS (3)
  - BLADDER DISORDER [None]
  - HYPONATRAEMIA [None]
  - IATROGENIC INJURY [None]
